FAERS Safety Report 5053436-2 (Version None)
Quarter: 2006Q3

REPORT INFORMATION
  Report Type: 
  Country: None (occurrence: None)
  Receive Date: 20060712
  Receipt Date: 20060703
  Transmission Date: 20061208
  Serious: Yes (Other)
  Sender: FDA-Public Use
  Company Number: 226981

PATIENT
  Age: 31 Year
  Sex: Male

DRUGS (1)
  1. MABTHERA (RITUXIMAB) CONC FOR SOLUTION FOR INFUSION [Suspect]
     Indication: BEHCET'S SYNDROME
     Dosage: 1000 MG, INTRAVENOUS
     Route: 042
     Dates: start: 20060501

REACTIONS (2)
  - INFUSION RELATED REACTION [None]
  - NEUTROPENIA [None]
